FAERS Safety Report 11116282 (Version 1)
Quarter: 2015Q2

REPORT INFORMATION
  Report Type: Spontaneous
  Country: US (occurrence: None)
  Receive Date: 20150514
  Receipt Date: 20150514
  Transmission Date: 20150821
  Serious: Yes (Disabling)
  Sender: FDA-Public Use
  Company Number: None

PATIENT
  Age: 64 Year
  Sex: Female
  Weight: 62.6 kg

DRUGS (4)
  1. VITAMIN D [Concomitant]
     Active Substance: CHOLECALCIFEROL
  2. TRAMADIL [Concomitant]
  3. CALCIUM [Concomitant]
     Active Substance: CALCIUM
  4. PROLIA [Suspect]
     Active Substance: DENOSUMAB
     Indication: OSTEOPOROSIS
     Dosage: 60MG/ML, EVERY 6 MONTHS
     Route: 030

REACTIONS (7)
  - Bone pain [None]
  - Musculoskeletal pain [None]
  - Myalgia [None]
  - Pain in extremity [None]
  - Arthralgia [None]
  - Movement disorder [None]
  - Constipation [None]

NARRATIVE: CASE EVENT DATE: 20141121
